FAERS Safety Report 13256836 (Version 1)
Quarter: 2017Q1

REPORT INFORMATION
  Report Type: Report from Study
  Country: US (occurrence: US)
  Receive Date: 20170221
  Receipt Date: 20170221
  Transmission Date: 20170428
  Serious: Yes (Hospitalization, Other)
  Sender: FDA-Public Use
  Company Number: US-GILEAD-2017-0258505

PATIENT
  Age: 55 Year
  Sex: Male

DRUGS (1)
  1. RANOLAZINE [Suspect]
     Active Substance: RANOLAZINE
     Indication: ANGINA PECTORIS
     Dosage: 500 MG, UNK
     Route: 048

REACTIONS (6)
  - Renal transplant [Unknown]
  - Blood pressure increased [Unknown]
  - Fluid overload [Recovered/Resolved]
  - Dialysis [Recovered/Resolved]
  - Renal impairment [Unknown]
  - Chest pain [Unknown]

NARRATIVE: CASE EVENT DATE: 20170118
